FAERS Safety Report 8353777-7 (Version None)
Quarter: 2012Q2

REPORT INFORMATION
  Report Type: 
  Country: None (occurrence: None)
  Receive Date: 20120511
  Receipt Date: 20111110
  Transmission Date: 20120825
  Serious: No
  Sender: FDA-Public Use
  Company Number: US-GLAXOSMITHKLINE-A0952627A

PATIENT
  Age: 73 Year
  Sex: Female

DRUGS (5)
  1. VICODIN [Concomitant]
  2. ZOMETA [Concomitant]
  3. TYKERB [Suspect]
     Indication: BREAST CANCER
     Dosage: 4TAB PER DAY
     Route: 048
     Dates: start: 20111013, end: 20111104
  4. AROMASIN [Concomitant]
  5. HERCEPTIN [Concomitant]

REACTIONS (6)
  - SKIN TIGHTNESS [None]
  - SKIN EXFOLIATION [None]
  - INFECTION [None]
  - DRY SKIN [None]
  - SKIN BURNING SENSATION [None]
  - SKIN CHAPPED [None]
